FAERS Safety Report 6868745-1 (Version None)
Quarter: 2010Q3

REPORT INFORMATION
  Report Type: 
  Country: None (occurrence: None)
  Receive Date: 20100722
  Receipt Date: 20080611
  Transmission Date: 20110219
  Serious: No
  Sender: FDA-Public Use
  Company Number: US-PFIZER INC-2008051164

PATIENT
  Age: 58 Year
  Sex: Female

DRUGS (2)
  1. CHANTIX [Suspect]
     Dates: start: 20080401, end: 20080101
  2. PREDNISOLONE [Concomitant]
     Indication: RHEUMATOID ARTHRITIS

REACTIONS (1)
  - NIGHTMARE [None]
